FAERS Safety Report 10694905 (Version 1)
Quarter: 2015Q1

REPORT INFORMATION
  Report Type: Spontaneous
  Country: US (occurrence: None)
  Receive Date: 20150106
  Receipt Date: 20150106
  Transmission Date: 20150721
  Serious: No
  Sender: FDA-Public Use
  Company Number: None

PATIENT
  Age: 61 Year
  Sex: Female
  Weight: 63.5 kg

DRUGS (2)
  1. SUPREP BOWEL PREP [Suspect]
     Active Substance: MAGNESIUM SULFATE\POTASSIUM SULFATE\SODIUM SULFATE
     Indication: COLONOSCOPY
     Dosage: TWO DOSES LIQUID  TWO SEPARATE DOSES TAKEN BY MOUTH
     Route: 048
     Dates: start: 20150104, end: 20150104
  2. SUPREP BOWEL PREP [Suspect]
     Active Substance: MAGNESIUM SULFATE\POTASSIUM SULFATE\SODIUM SULFATE
     Indication: BOWEL PREPARATION
     Dosage: TWO DOSES LIQUID  TWO SEPARATE DOSES TAKEN BY MOUTH
     Route: 048
     Dates: start: 20150104, end: 20150104

REACTIONS (1)
  - Vomiting [None]

NARRATIVE: CASE EVENT DATE: 20150104
